FAERS Safety Report 5470022-0 (Version None)
Quarter: 2007Q3

REPORT INFORMATION
  Report Type: 
  Country: None (occurrence: None)
  Receive Date: 20070927
  Receipt Date: 20070917
  Transmission Date: 20080115
  Serious: Yes (Life-Threatening)
  Sender: FDA-Public Use
  Company Number: FR-SANOFI-SYNTHELABO-A02200702581

PATIENT
  Sex: Female

DRUGS (1)
  1. ELOXATIN [Suspect]
     Route: 042
     Dates: start: 20070808, end: 20070808

REACTIONS (9)
  - BRADYCARDIA [None]
  - HYPERTENSION [None]
  - HYPOTENSION [None]
  - LOSS OF CONSCIOUSNESS [None]
  - MALAISE [None]
  - NAUSEA [None]
  - PHARMACEUTICAL PRODUCT COMPLAINT [None]
  - PRURITUS [None]
  - RESPIRATORY DISORDER [None]
